FAERS Safety Report 7718316-X (Version None)
Quarter: 2011Q3

REPORT INFORMATION
  Report Type: 
  Country: None (occurrence: None)
  Receive Date: 20110830
  Receipt Date: 20110824
  Transmission Date: 20111222
  Serious: No
  Sender: FDA-Public Use
  Company Number: US-PFIZER INC-2011129817

PATIENT
  Sex: Female

DRUGS (5)
  1. ESTRING [Suspect]
     Indication: ATROPHIC VULVOVAGINITIS
     Dosage: 2 MG, EVERY 3 MONTHS(INSERT 1 RING VAGINALLY EVERY 90 DAYS)
     Route: 067
     Dates: start: 20110524, end: 20110527
  2. ESTRING [Suspect]
     Indication: VAGINAL PROLAPSE
  3. SYNTHROID [Concomitant]
     Indication: HYPOTHYROIDISM
     Dosage: 75 UG, 1X/DAY
     Dates: start: 20100501
  4. LISINOPRIL [Concomitant]
     Indication: HYPERTENSION
     Dosage: UNK
     Dates: start: 20060301
  5. METFORMIN [Concomitant]
     Indication: DIABETES MELLITUS
     Dosage: 850 MG, 1X/DAY
     Dates: start: 20100520

REACTIONS (2)
  - VULVOVAGINAL PAIN [None]
  - VAGINAL HAEMORRHAGE [None]
